FAERS Safety Report 4288926-3 (Version None)
Quarter: 2004Q1

REPORT INFORMATION
  Report Type: 
  Country: None (occurrence: None)
  Receive Date: 20040206
  Receipt Date: 20040123
  Transmission Date: 20041129
  Serious: Yes (Death)
  Sender: FDA-Public Use
  Company Number: S03-USA-01644-01

PATIENT
  Age: 16 Year
  Sex: Female

DRUGS (3)
  1. CELEXA [Suspect]
     Indication: DEPRESSION
     Dosage: SEE IMAGE
     Route: 048
     Dates: start: 20020304
  2. VALPROIC ACID [Concomitant]
  3. SEROQUEL [Concomitant]

REACTIONS (3)
  - AGGRESSION [None]
  - ASPHYXIA [None]
  - COMPLETED SUICIDE [None]
